FAERS Safety Report 7540300-X (Version None)
Quarter: 2011Q2

REPORT INFORMATION
  Report Type: 
  Country: None (occurrence: None)
  Receive Date: 20110610
  Receipt Date: 20110531
  Transmission Date: 20111010
  Serious: Yes (Other)
  Sender: FDA-Public Use
  Company Number: PHHY2011CA31926

PATIENT
  Sex: Female

DRUGS (2)
  1. SANDOSTATIN LAR [Suspect]
     Indication: NEUROENDOCRINE CARCINOMA
     Dosage: 60 MG EVERY 04 WEEKS
     Route: 030
     Dates: start: 20070704
  2. AFINITOR [Suspect]
     Indication: NEUROENDOCRINE CARCINOMA
     Dosage: 10 MG, QD
     Route: 048
     Dates: start: 20110225

REACTIONS (8)
  - FEELING ABNORMAL [None]
  - ASTHENIA [None]
  - DECREASED APPETITE [None]
  - DYSURIA [None]
  - LETHARGY [None]
  - CYSTITIS [None]
  - ABDOMINAL PAIN [None]
  - CHILLS [None]
